FAERS Safety Report 16136115 (Version 4)
Quarter: 2019Q2

REPORT INFORMATION
  Report Type: Spontaneous
  Country: US (occurrence: US)
  Receive Date: 20190329
  Receipt Date: 20190529
  Transmission Date: 20190711
  Serious: No
  Sender: FDA-Public Use
  Company Number: US-009507513-1903USA012011

PATIENT
  Age: 64 Year
  Sex: Female

DRUGS (6)
  1. SINEMET [Suspect]
     Active Substance: CARBIDOPA\LEVODOPA
     Indication: PARKINSON^S DISEASE
     Dosage: UNK
     Route: 048
     Dates: start: 2017
  2. SINEMET [Suspect]
     Active Substance: CARBIDOPA\LEVODOPA
     Dosage: INCREASED TO HELP WITH NEUROPATHY PAIN
     Route: 048
  3. SINEMET [Suspect]
     Active Substance: CARBIDOPA\LEVODOPA
     Dosage: EVERY 2 HOURS AROUND THE CLOCK
     Route: 048
  4. CARBIDOPA (+) LEVODOPA [Suspect]
     Active Substance: CARBIDOPA\LEVODOPA
  5. CARBIDOPA (+) LEVODOPA [Suspect]
     Active Substance: CARBIDOPA\LEVODOPA
     Dosage: 1/2 TABLET FOR 4 DAYS/HALF A TABLET FOR 3 OR 4 DAYS
     Route: 048
     Dates: start: 201902, end: 2019
  6. RYTARY [Suspect]
     Active Substance: CARBIDOPA\LEVODOPA
     Dosage: UNK
     Dates: start: 201807, end: 2018

REACTIONS (10)
  - Asthma [Recovered/Resolved]
  - Drug ineffective [Unknown]
  - Product availability issue [Unknown]
  - Pain in extremity [Unknown]
  - Dyspnoea [Not Recovered/Not Resolved]
  - Neuralgia [Recovering/Resolving]
  - Cough [Not Recovered/Not Resolved]
  - Intentional overdose [Unknown]
  - Intentional product use issue [Unknown]
  - Anxiety [Not Recovered/Not Resolved]

NARRATIVE: CASE EVENT DATE: 2018
